FAERS Safety Report 12207896 (Version 1)
Quarter: 2016Q1

REPORT INFORMATION
  Report Type: Spontaneous
  Country: US (occurrence: US)
  Receive Date: 20160324
  Receipt Date: 20160324
  Transmission Date: 20160526
  Serious: No
  Sender: FDA-Public Use
  Company Number: US-WARNER CHILCOTT, LLC-1049600

PATIENT
  Age: 60 Year
  Sex: Female

DRUGS (2)
  1. COZAAR [Concomitant]
     Active Substance: LOSARTAN POTASSIUM
  2. ESTRACE [Suspect]
     Active Substance: ESTRADIOL
     Indication: ATROPHIC VULVOVAGINITIS
     Route: 067
     Dates: start: 20150825, end: 20150830

REACTIONS (15)
  - Feeling abnormal [Unknown]
  - Malaise [Unknown]
  - Dyspnoea [Recovered/Resolved]
  - Breast pain [Not Recovered/Not Resolved]
  - Weight increased [Recovering/Resolving]
  - Arthralgia [Not Recovered/Not Resolved]
  - Nightmare [Recovered/Resolved]
  - Dysphagia [Recovered/Resolved]
  - Peripheral swelling [Recovering/Resolving]
  - Fatigue [Not Recovered/Not Resolved]
  - Headache [Recovered/Resolved]
  - Pain in extremity [Unknown]
  - Heart rate increased [Recovered/Resolved]
  - Breast discomfort [Unknown]
  - Pain [Unknown]

NARRATIVE: CASE EVENT DATE: 201508
